FAERS Safety Report 4504372-9 (Version None)
Quarter: 2004Q4

REPORT INFORMATION
  Report Type: 
  Country: None (occurrence: None)
  Receive Date: 20041115
  Receipt Date: 20041101
  Transmission Date: 20050328
  Serious: Yes (Other)
  Sender: FDA-Public Use
  Company Number: 2004074603

PATIENT
  Age: 17 Year
  Sex: Female
  Weight: 63.5036 kg

DRUGS (5)
  1. ZITHROMAX [Suspect]
     Indication: UPPER RESPIRATORY TRACT INFECTION
     Dosage: 500 MG (250 MG, 1 D), ORAL
     Route: 048
     Dates: start: 20041006
  2. AMOXICILLIN [Concomitant]
  3. IBUPROFEN [Concomitant]
  4. EPINEPHRINE BITARTATE (EPINEPHRINE BITARTRATE) [Concomitant]
  5. OTHER RESPIRATORY SYSTEM PRODUCTS (OTHER RESPIRATORY SYSTEM PRODUCTS) [Concomitant]

REACTIONS (6)
  - CONVULSION [None]
  - DYSPNOEA [None]
  - FALL [None]
  - HEADACHE [None]
  - INCOHERENT [None]
  - WHEEZING [None]
